FAERS Safety Report 14334882 (Version 8)
Quarter: 2018Q3

REPORT INFORMATION
  Report Type: Report from Study
  Country: None (occurrence: NL)
  Receive Date: 20171229
  Receipt Date: 20180922
  Transmission Date: 20181010
  Serious: Yes (Hospitalization)
  Sender: FDA-Public Use
  Company Number: NL-ABBVIE-16K-114-1820649-00

PATIENT
  Age: 77 Year
  Sex: Female

DRUGS (15)
  1. MADOPAR [Concomitant]
     Active Substance: BENSERAZIDE HYDROCHLORIDE\LEVODOPA
     Indication: PRODUCT USED FOR UNKNOWN INDICATION
     Dates: start: 201612, end: 201712
  2. DUODOPA [Suspect]
     Active Substance: CARBIDOPA\LEVODOPA
     Dosage: PUMP DOSAGES: MORNING DOSE FROM 5.1 TO 4.7/ CONTINUOUS DOSE 3.0 / EXTRA DOSE 0.7
     Route: 050
  3. CLOZAPINE. [Concomitant]
     Active Substance: CLOZAPINE
     Indication: PRODUCT USED FOR UNKNOWN INDICATION
  4. MACROGOL [Concomitant]
     Active Substance: POLYETHYLENE GLYCOLS
     Indication: PRODUCT USED FOR UNKNOWN INDICATION
  5. DUODOPA [Suspect]
     Active Substance: CARBIDOPA\LEVODOPA
     Dosage: MORNING DOSE REDUCED WITH 0.2 ML TO 5.3 ML
     Route: 050
  6. NOVORAPID [Concomitant]
     Active Substance: INSULIN ASPART
     Indication: DIABETES MELLITUS
  7. SIMVASTATINE [Concomitant]
     Active Substance: SIMVASTATIN
     Indication: PRODUCT USED FOR UNKNOWN INDICATION
  8. DUODOPA [Suspect]
     Active Substance: CARBIDOPA\LEVODOPA
     Dosage: MORNING DOSE DECREASED TO 4.5ML
     Route: 050
  9. DUODOPA [Suspect]
     Active Substance: CARBIDOPA\LEVODOPA
     Dosage: MORNING DOSE: 4.1 CONTINUOUS DOSE: 2.7 EXTRA DOSE: 0.7
     Route: 050
  10. DUODOPA [Suspect]
     Active Substance: CARBIDOPA\LEVODOPA
     Dosage: STARTED 24?HR TREATMENT?CND 1.3
     Route: 050
     Dates: start: 20171214
  11. DUODOPA [Suspect]
     Active Substance: CARBIDOPA\LEVODOPA
     Dosage: MD 4.6ML; CD: 2.7ML/HOUR; ED 0.7ML
     Route: 050
  12. SYNAPAUSE [Concomitant]
     Indication: INFECTION PROPHYLAXIS
  13. DUODOPA [Suspect]
     Active Substance: CARBIDOPA\LEVODOPA
     Indication: PARKINSON^S DISEASE
     Dosage: MD: 5.7, CD: 3.0, ED: 0.7
     Route: 050
     Dates: start: 20161212
  14. DUODOPA [Suspect]
     Active Substance: CARBIDOPA\LEVODOPA
     Dosage: CONTINUOUS DOSE DECREASED WITH 0.3ML TO 2.7ML/HOUR
     Route: 050
  15. MADOPAR HBS [Suspect]
     Active Substance: BENSERAZIDE HYDROCHLORIDE\LEVODOPA
     Indication: PRODUCT USED FOR UNKNOWN INDICATION
     Route: 065

REACTIONS (89)
  - Nausea [Not Recovered/Not Resolved]
  - Blood glucose abnormal [Recovering/Resolving]
  - Drug dose omission [Not Recovered/Not Resolved]
  - Overdose [Recovered/Resolved]
  - Tremor [Recovered/Resolved]
  - Constipation [Recovered/Resolved]
  - Blood glucose increased [Recovering/Resolving]
  - Anxiety [Not Recovered/Not Resolved]
  - Stoma site erythema [Recovered/Resolved]
  - Fibroma [Not Recovered/Not Resolved]
  - Faeces hard [Not Recovered/Not Resolved]
  - Psychomotor hyperactivity [Unknown]
  - Dysstasia [Recovered/Resolved]
  - Muscular weakness [Recovered/Resolved]
  - Malaise [Not Recovered/Not Resolved]
  - Hypoaesthesia [Not Recovered/Not Resolved]
  - Stoma site erythema [Recovered/Resolved]
  - Freezing phenomenon [Unknown]
  - Restlessness [Recovered/Resolved]
  - Disinhibition [Recovering/Resolving]
  - Influenza [Recovered/Resolved]
  - Suspiciousness [Not Recovered/Not Resolved]
  - Restlessness [Not Recovered/Not Resolved]
  - Blood pressure fluctuation [Not Recovered/Not Resolved]
  - Headache [Not Recovered/Not Resolved]
  - Fatigue [Not Recovered/Not Resolved]
  - Stoma site pain [Recovered/Resolved]
  - Dyskinesia [Recovering/Resolving]
  - Freezing phenomenon [Not Recovered/Not Resolved]
  - Nocturia [Not Recovered/Not Resolved]
  - Disturbance in attention [Not Recovered/Not Resolved]
  - Fistula inflammation [Not Recovered/Not Resolved]
  - Drug dispensing error [Unknown]
  - Asthenia [Recovering/Resolving]
  - Asthenia [Recovered/Resolved]
  - Respiratory tract infection [Recovered/Resolved]
  - Stoma site induration [Recovered/Resolved]
  - Procedural pain [Recovered/Resolved]
  - Hallucination [Recovered/Resolved]
  - Somnolence [Recovered/Resolved]
  - Stoma site inflammation [Recovered/Resolved]
  - Cognitive disorder [Not Recovered/Not Resolved]
  - Oropharyngeal pain [Recovered/Resolved]
  - Laceration [Not Recovered/Not Resolved]
  - Musculoskeletal stiffness [Not Recovered/Not Resolved]
  - Abnormal behaviour [Not Recovered/Not Resolved]
  - Drug effect incomplete [Not Recovered/Not Resolved]
  - Gastrointestinal infection [Not Recovered/Not Resolved]
  - Abnormal faeces [Unknown]
  - Hyperkinesia [Recovering/Resolving]
  - Hallucination [Not Recovered/Not Resolved]
  - Dyskinesia [Unknown]
  - Motor dysfunction [Not Recovered/Not Resolved]
  - Diabetes mellitus [Not Recovered/Not Resolved]
  - Muscle rigidity [Recovered/Resolved]
  - Head injury [Recovered/Resolved]
  - Musculoskeletal stiffness [Not Recovered/Not Resolved]
  - General physical health deterioration [Unknown]
  - Gait disturbance [Recovering/Resolving]
  - Memory impairment [Not Recovered/Not Resolved]
  - Diarrhoea [Not Recovered/Not Resolved]
  - Speech disorder [Not Recovered/Not Resolved]
  - Urinary tract infection [Not Recovered/Not Resolved]
  - Wheezing [Recovered/Resolved]
  - Mental impairment [Recovered/Resolved]
  - Aphasia [Not Recovered/Not Resolved]
  - Tremor [Recovered/Resolved]
  - Fall [Not Recovered/Not Resolved]
  - Agitation [Recovered/Resolved]
  - Purulent discharge [Not Recovered/Not Resolved]
  - Stoma site discharge [Recovered/Resolved]
  - Stoma site odour [Recovered/Resolved]
  - Confusional state [Not Recovered/Not Resolved]
  - Bradykinesia [Not Recovered/Not Resolved]
  - Abdominal pain upper [Not Recovered/Not Resolved]
  - Medical device site discolouration [Not Recovered/Not Resolved]
  - Compulsions [Not Recovered/Not Resolved]
  - Fluid intake reduced [Not Recovered/Not Resolved]
  - Eye disorder [Recovered/Resolved]
  - Dysphonia [Recovered/Resolved]
  - Body temperature increased [Recovered/Resolved]
  - Dysstasia [Not Recovered/Not Resolved]
  - Delusion [Not Recovered/Not Resolved]
  - Abnormal dreams [Not Recovered/Not Resolved]
  - Syncope [Recovering/Resolving]
  - On and off phenomenon [Recovered/Resolved]
  - Stoma site discomfort [Recovered/Resolved]
  - Procedural complication [Recovering/Resolving]
  - Hyperkinesia [Recovered/Resolved]

NARRATIVE: CASE EVENT DATE: 201612
